FAERS Safety Report 7900025-5 (Version None)
Quarter: 2011Q4

REPORT INFORMATION
  Report Type: 
  Country: None (occurrence: None)
  Receive Date: 20111108
  Receipt Date: 20111025
  Transmission Date: 20120403
  Serious: Yes (Other)
  Sender: FDA-Public Use
  Company Number: US-RANBAXY-2011US-48827

PATIENT

DRUGS (6)
  1. PREVACHOL [Concomitant]
     Indication: BLOOD CHOLESTEROL
     Dosage: 40MG, UNK
     Route: 065
  2. VALACYCLOVIR HYDROCHLORIDE [Suspect]
     Indication: HERPES OPHTHALMIC
     Dosage: 1G DAILY
     Route: 048
     Dates: start: 20110901
  3. WARFARIN SODIUM [Concomitant]
     Indication: PRODUCT USED FOR UNKNOWN INDICATION
     Dosage: 35 MG, 1/WEEK
     Route: 065
  4. SECTRAL [Concomitant]
     Indication: VENTRICULAR EXTRASYSTOLES
     Dosage: UNK
     Route: 065
  5. VALACYCLOVIR HYDROCHLORIDE [Suspect]
     Dosage: 3G DAILY
     Route: 048
     Dates: start: 20111003
  6. LOSARTAN [Concomitant]
     Indication: BLOOD PRESSURE
     Dosage: 25MG, UNK
     Route: 065

REACTIONS (2)
  - TRANSPLANT FAILURE [None]
  - DRUG INEFFECTIVE [None]
